FAERS Safety Report 8432512-8 (Version None)
Quarter: 2012Q2

REPORT INFORMATION
  Report Type: 
  Country: None (occurrence: None)
  Receive Date: 20120613
  Receipt Date: 20120612
  Transmission Date: 20120825
  Serious: Yes (Life-Threatening)
  Sender: FDA-Public Use
  Company Number: PHHO2012CN008411

PATIENT
  Sex: Female
  Weight: 62 kg

DRUGS (7)
  1. BLINDED NO TREATMENT RECEIVED [Suspect]
     Indication: BREAST CANCER METASTATIC
     Dosage: CODE NOT BROKEN
     Dates: start: 20120210, end: 20120306
  2. VINORELBINE [Suspect]
     Indication: BREAST CANCER METASTATIC
     Dosage: UNK
     Dates: start: 20120210, end: 20120530
  3. AFINITOR [Suspect]
     Dosage: CODE NOT BROKEN
     Dates: start: 20120313, end: 20120530
  4. PLACEBO [Suspect]
     Dosage: CODE NOT BROKEN
     Dates: start: 20120313, end: 20120530
  5. PLACEBO [Suspect]
     Indication: BREAST CANCER METASTATIC
     Dosage: CODE NOT BROKEN
     Dates: start: 20120210, end: 20120306
  6. AFINITOR [Suspect]
     Indication: BREAST CANCER METASTATIC
     Dosage: CODE NOT BROKEN
     Dates: start: 20120210, end: 20120306
  7. BLINDED NO TREATMENT RECEIVED [Suspect]
     Dosage: CODE NOT BROKEN
     Dates: start: 20120313, end: 20120530

REACTIONS (1)
  - MUCOSAL INFECTION [None]
